FAERS Safety Report 6668200-8 (Version None)
Quarter: 2010Q2

REPORT INFORMATION
  Report Type: 
  Country: None (occurrence: None)
  Receive Date: 20100405
  Receipt Date: 20100405
  Transmission Date: 20101027
  Serious: Yes (Other)
  Sender: FDA-Public Use
  Company Number: None

PATIENT
  Age: 73 Year
  Sex: Female
  Weight: 78.4723 kg

DRUGS (1)
  1. RECLAST [Suspect]
     Dosage: 5 MG X1 IV
     Route: 042
     Dates: start: 20100323

REACTIONS (4)
  - ERYTHEMA [None]
  - MYALGIA [None]
  - PRURITUS [None]
  - SKIN PLAQUE [None]
